FAERS Safety Report 4729513-X (Version None)
Quarter: 2005Q3

REPORT INFORMATION
  Report Type: 
  Country: None (occurrence: None)
  Receive Date: 20050801
  Receipt Date: 20050505
  Transmission Date: 20060218
  Serious: Yes (Hospitalization)
  Sender: FDA-Public Use
  Company Number: US-MERCK-0505USA00785

PATIENT
  Age: 71 Year
  Sex: Male
  Weight: 90 kg

DRUGS (3)
  1. TYLENOL (CAPLET) [Concomitant]
     Route: 065
     Dates: start: 20000901
  2. VITAMINS (UNSPECIFIED) [Concomitant]
     Route: 065
  3. VIOXX [Suspect]
     Indication: OSTEOARTHRITIS
     Route: 048
     Dates: start: 20000201, end: 20000918

REACTIONS (13)
  - ACUTE MYOCARDIAL INFARCTION [None]
  - AKINESIA [None]
  - BRONCHITIS [None]
  - CHOLELITHIASIS [None]
  - CHRONIC OBSTRUCTIVE PULMONARY DISEASE [None]
  - CORONARY ARTERY DISEASE [None]
  - HAEMATOMA [None]
  - HERNIA [None]
  - INSOMNIA [None]
  - MYOCARDIAL INFARCTION [None]
  - PULMONARY CONGESTION [None]
  - RENAL CYST [None]
  - RESTLESSNESS [None]
